FAERS Safety Report 16200800 (Version 1)
Quarter: 2019Q2

REPORT INFORMATION
  Report Type: Spontaneous
  Country: US (occurrence: US)
  Receive Date: 20190416
  Receipt Date: 20190416
  Transmission Date: 20190711
  Serious: No
  Sender: FDA-Public Use
  Company Number: US-BION-007316

PATIENT
  Age: 61 Year
  Sex: Male
  Weight: 122 kg

DRUGS (1)
  1. ALEVE [Suspect]
     Active Substance: NAPROXEN SODIUM
     Indication: PAIN
     Dosage: DOSE: 2 IN THE MORNING AND 2 AT NIGHT
     Route: 048
     Dates: start: 20180706, end: 20180709

REACTIONS (3)
  - Product physical consistency issue [Unknown]
  - Incorrect dose administered [Not Recovered/Not Resolved]
  - Poor quality product administered [Not Recovered/Not Resolved]

NARRATIVE: CASE EVENT DATE: 20180706
